FAERS Safety Report 22843559 (Version 3)
Quarter: 2025Q3

REPORT INFORMATION
  Report Type: Report from Study
  Country: CA (occurrence: CA)
  Receive Date: 20230821
  Receipt Date: 20250704
  Transmission Date: 20251020
  Serious: Yes (Other)
  Sender: TAKEDA
  Company Number: CA-TAKEDA-2023TUS039072

PATIENT
  Sex: Female

DRUGS (4)
  1. VEDOLIZUMAB [Suspect]
     Active Substance: VEDOLIZUMAB
     Indication: Colitis ulcerative
  2. VEDOLIZUMAB [Suspect]
     Active Substance: VEDOLIZUMAB
     Indication: Proctitis ulcerative
  3. VEDOLIZUMAB [Suspect]
     Active Substance: VEDOLIZUMAB
  4. MESALAMINE [Suspect]
     Active Substance: MESALAMINE
     Indication: Rash

REACTIONS (8)
  - Rectal haemorrhage [Unknown]
  - Treatment failure [Unknown]
  - Productive cough [Unknown]
  - Butterfly rash [Unknown]
  - Photosensitivity reaction [Unknown]
  - Drug hypersensitivity [Unknown]
  - Constipation [Unknown]
  - Arthralgia [Unknown]
